FAERS Safety Report 9295234 (Version 1)
Quarter: 2013Q2

REPORT INFORMATION
  Report Type: Other
  Country: KR (occurrence: KR)
  Receive Date: 20130517
  Receipt Date: 20130517
  Transmission Date: 20140414
  Serious: Yes (Other)
  Sender: FDA-Public Use
  Company Number: KR-BRISTOL-MYERS SQUIBB COMPANY-18869727

PATIENT
  Age: 57 Year
  Sex: Male

DRUGS (3)
  1. TAXOL [Suspect]
     Indication: LUNG ADENOCARCINOMA
     Dosage: FOR 5MONTHS
  2. BEVACIZUMAB [Concomitant]
     Indication: LUNG ADENOCARCINOMA
  3. CARBOPLATIN [Concomitant]
     Indication: LUNG ADENOCARCINOMA

REACTIONS (1)
  - Cystoid macular oedema [Recovering/Resolving]
